FAERS Safety Report 9044654 (Version 2)
Quarter: 2013Q1

REPORT INFORMATION
  Report Type: Spontaneous
  Country: US (occurrence: US)
  Receive Date: 20130130
  Receipt Date: 20130304
  Transmission Date: 20140127
  Serious: Yes (Other)
  Sender: FDA-Public Use
  Company Number: US-BAYER-2013-008770

PATIENT
  Age: 84 Year
  Sex: Female
  Weight: 67.12 kg

DRUGS (5)
  1. CIPRO [Suspect]
     Dosage: UNK
  2. PREMARIN [Suspect]
     Indication: INFECTION PROPHYLAXIS
     Dosage: UNK, DAILY
     Route: 067
  3. PREMARIN [Suspect]
     Indication: VULVOVAGINAL DRYNESS
  4. ANTIBIOTICS [Suspect]
     Indication: CYSTITIS
     Dosage: UNK
  5. DRONEDARONE [Concomitant]
     Indication: ATRIAL FIBRILLATION
     Dosage: 400 MG, BID

REACTIONS (3)
  - Cystitis klebsiella [Unknown]
  - Swelling [Unknown]
  - Drug ineffective [Unknown]
